FAERS Safety Report 8990357 (Version 3)
Quarter: 2013Q2

REPORT INFORMATION
  Report Type: Spontaneous
  Country: JP (occurrence: JP)
  Receive Date: 20121228
  Receipt Date: 20130502
  Transmission Date: 20140414
  Serious: Yes (Hospitalization)
  Sender: FDA-Public Use
  Company Number: JP-ELI_LILLY_AND_COMPANY-JP201212006293

PATIENT
  Age: 83 Year
  Sex: Female

DRUGS (1)
  1. FORTEO [Suspect]
     Dosage: UNK
     Route: 058
     Dates: start: 201108, end: 201304

REACTIONS (8)
  - Fall [Recovered/Resolved]
  - Foot fracture [Unknown]
  - Postoperative wound infection [Unknown]
  - Blood pressure increased [Unknown]
  - Nausea [Unknown]
  - Fall [Recovered/Resolved]
  - Dementia [Not Recovered/Not Resolved]
  - Incontinence [Unknown]
